FAERS Safety Report 18262963 (Version 1)
Quarter: 2020Q3

REPORT INFORMATION
  Report Type: Spontaneous
  Country: US (occurrence: US)
  Receive Date: 20200914
  Receipt Date: 20200914
  Transmission Date: 20201103
  Serious: Yes (Other)
  Sender: FDA-Public Use
  Company Number: None

PATIENT
  Age: 40 Year
  Sex: Female
  Weight: 74.25 kg

DRUGS (5)
  1. TOPS MAX [Concomitant]
  2. ZOMIG [Concomitant]
     Active Substance: ZOLMITRIPTAN
  3. AMBIEN [Suspect]
     Active Substance: ZOLPIDEM TARTRATE
     Indication: INSOMNIA
     Route: 048
     Dates: start: 20100101, end: 20190226
  4. SEROQUEL [Concomitant]
     Active Substance: QUETIAPINE FUMARATE
  5. OMEPRAZOLE. [Concomitant]
     Active Substance: OMEPRAZOLE

REACTIONS (3)
  - Crime [None]
  - Mental impairment [None]
  - Road traffic accident [None]

NARRATIVE: CASE EVENT DATE: 20190226
